FAERS Safety Report 8428536-7 (Version None)
Quarter: 2012Q2

REPORT INFORMATION
  Report Type: 
  Country: None (occurrence: None)
  Receive Date: 20120612
  Receipt Date: 20120530
  Transmission Date: 20120825
  Serious: Yes (Life-Threatening, Hospitalization, Other)
  Sender: FDA-Public Use
  Company Number: JP-BRISTOL-MYERS SQUIBB COMPANY-14804058

PATIENT
  Age: 64 Year
  Sex: Female
  Weight: 56 kg

DRUGS (33)
  1. GRANISETRON  HCL [Concomitant]
     Indication: PROPHYLAXIS
     Dosage: INJ.THERAPY RESTARTED ON 24SEP09-26SEP09 WITH 2A/DAY AS DAILY DOSE.
     Route: 042
     Dates: start: 20090610, end: 20090610
  2. DOXORUBICIN HCL [Concomitant]
     Indication: ACUTE LYMPHOCYTIC LEUKAEMIA
     Dosage: INJ
     Route: 042
     Dates: start: 20090814, end: 20090814
  3. LEUCOVORIN CALCIUM [Concomitant]
     Dosage: INJ
     Route: 042
     Dates: start: 20090701, end: 20090703
  4. URALYT [Concomitant]
     Indication: PROPHYLAXIS
     Dosage: 1 DF : 3TAB,6 TAB,19MAY09-25MAY09,23SEP09-28SEP09
     Route: 048
     Dates: start: 20090519, end: 20090928
  5. BACTRIM [Concomitant]
     Indication: PROPHYLAXIS
     Dosage: 1 DF : 1TAB,06AUG09-26JUL09,26SEP09-09OCT09
     Route: 048
     Dates: start: 20090806, end: 20091009
  6. OMEPRAZOLE [Suspect]
     Indication: PROPHYLAXIS
     Route: 048
     Dates: start: 20090519, end: 20090525
  7. POTASSIUM CITRATE [Concomitant]
     Indication: PROPHYLAXIS
     Dosage: 1 DF = 6 TABS, 29JUN09-04JUL09,11AUG09-15AUG09
     Route: 048
     Dates: start: 20090519, end: 20090815
  8. CYCLOPHOSPHAMIDE [Concomitant]
     Indication: ACUTE LYMPHOCYTIC LEUKAEMIA
     Dosage: INJ
     Route: 042
     Dates: start: 20090811, end: 20090813
  9. SULBACTAM SODIUM [Concomitant]
     Dosage: INJ
     Route: 042
     Dates: start: 20090723, end: 20090728
  10. ACETAZOLAMIDE [Concomitant]
     Dosage: TABLET.THERAPY RESTARTED 23SEP-28SEP09,WITH 2TAB/DAY.
     Route: 048
     Dates: start: 20090629, end: 20090704
  11. GASMOTIN [Concomitant]
     Indication: PROPHYLAXIS
     Dosage: 1 DF : 3 TABS,19MAY09-11JUN09,30SEP09-09OCT09
     Route: 048
     Dates: start: 20090519, end: 20091009
  12. PREDNISOLONE [Suspect]
     Indication: PROPHYLAXIS
     Route: 048
     Dates: start: 20090527, end: 20090616
  13. SODIUM CITRATE [Concomitant]
     Indication: PROPHYLAXIS
     Dosage: 1 DF = 6 TABS, 29JUN09-04JUL09,11AUG09-15AUG09,THERAPY RESTARTED 23SEP-28SEP09 WITH 6TABS/DAY.
     Route: 048
     Dates: start: 20090519, end: 20090815
  14. DIART [Concomitant]
     Indication: PROPHYLAXIS
     Dosage: TAB.THERAPY STOPPED ON 31MAY09 WITH 30 MG, RESTARTED ,22JUL09-26AUG09,30SEP09-09OCT09
     Route: 048
     Dates: start: 20090527, end: 20091009
  15. METHYLPREDNISOLONE SODIUM SUCCINATE [Concomitant]
     Indication: ACUTE LYMPHOCYTIC LEUKAEMIA
     Dosage: INJ,THERAPY RESTARTED 24SEP09-26SEP09,WITH 100MG/DAY.
     Route: 042
     Dates: start: 20090630, end: 20090702
  16. NEUQUINON [Concomitant]
     Indication: PROPHYLAXIS
     Dosage: 1 DOSAGE FORM=3 TABS.THERAPY RESTARTED ON 23SEP09-28SEP09 WITH 3 TABLETS/DAY.
     Route: 048
     Dates: start: 20090129, end: 20090815
  17. SPRYCEL [Suspect]
     Indication: ACUTE LYMPHOCYTIC LEUKAEMIA
     Dosage: THERAPY INTERRUPTED ON 04SEP09,RESTARTED ON 24SEP09.
     Route: 048
     Dates: start: 20090527, end: 20091009
  18. MARZULENE-S [Suspect]
     Indication: PROPHYLAXIS
     Dosage: 3 PACKS
     Route: 048
     Dates: start: 20090519, end: 20090818
  19. CYTARABINE [Concomitant]
     Indication: ACUTE LYMPHOCYTIC LEUKAEMIA
     Dosage: ROA: MY; INJ,3000MG,RESTARTED FROM 25SEP-26SEP09,WITH 5800 MG/DAY.,18JUN09-18JUN09,01JUL09-02JUL09
     Route: 042
     Dates: start: 20090618, end: 20090702
  20. OREN-GEDOKU-TO [Concomitant]
     Indication: PROPHYLAXIS
     Dosage: 1 DF=3 PACKAGES, POW.STOPPED ON 14JUL09. RESTARTED,24SEP09-09OCT09
     Route: 048
     Dates: start: 20090701, end: 20091009
  21. TRIMETHOPRIM [Concomitant]
     Dosage: TAB, 6TABS 28JUL-06AUG;1 TAB 06AUG-26AUG.THERAPY RESTARTED ON 26SEP-09OCT09 WITH 2 TAB/DAY.
     Route: 048
     Dates: start: 20090728, end: 20090826
  22. ONCOVIN [Suspect]
     Indication: ACUTE LYMPHOCYTIC LEUKAEMIA
     Dosage: 20MAY09-20MAY09 27MAY09-27MAY09 03JUN09-03JUN09 10JUN09-10JUN09 14AUG09-14AUG09
     Route: 042
     Dates: start: 20090520, end: 20090814
  23. DEXAMETHASONE SODIUM PHOSPHATE [Concomitant]
     Indication: ACUTE LYMPHOCYTIC LEUKAEMIA
     Dosage: INJ
     Route: 042
     Dates: start: 20090811, end: 20090814
  24. AMPICILLIN SODIUM [Concomitant]
     Dosage: INJ
     Route: 042
     Dates: start: 20090723, end: 20090728
  25. MOSAPRIDE CITRATE [Concomitant]
     Dosage: 1 DF=3TABLETS
     Route: 048
     Dates: end: 20091009
  26. GRANISETRON  HCL [Concomitant]
     Indication: ANTIEMETIC SUPPORTIVE CARE
     Dosage: INJ.THERAPY RESTARTED ON 24SEP09-26SEP09 WITH 2A/DAY AS DAILY DOSE.
     Route: 042
     Dates: start: 20090610, end: 20090610
  27. METHOTREXATE [Concomitant]
     Indication: ACUTE LYMPHOCYTIC LEUKAEMIA
     Dosage: 1450MG,18JUN09-18JUN09;IT,ROA - MY; INJ,.THERAPY RESTARTED ON 24SEP-25SEP09,WITH 1490 MG/DAY.
     Route: 042
     Dates: start: 20090618, end: 20090701
  28. AMIKACIN SULFATE [Concomitant]
     Dosage: INJ
     Route: 042
     Dates: start: 20090713, end: 20090717
  29. CARBAZOCHROME SODIUM SULFONATE [Concomitant]
     Route: 042
     Dates: start: 20090819, end: 20090828
  30. AMINO ACID INJ [Concomitant]
     Dosage: 1DF=900 ML/DAY.INJECTION.
     Route: 042
     Dates: start: 20090827, end: 20090910
  31. MIYA-BM [Concomitant]
     Indication: PROPHYLAXIS
     Dosage: 1 DF : 3 TAB
     Route: 048
     Dates: start: 20090924, end: 20091009
  32. ALDACTONE [Concomitant]
     Indication: PROPHYLAXIS
     Route: 048
     Dates: start: 20090527, end: 20091009
  33. MAXIPIME [Concomitant]
     Route: 042
     Dates: start: 20090709, end: 20090718

REACTIONS (19)
  - LIVER DISORDER [None]
  - DECREASED APPETITE [None]
  - DIARRHOEA [None]
  - PLATELET COUNT DECREASED [None]
  - NEUTROPHIL COUNT DECREASED [None]
  - GASTROOESOPHAGEAL REFLUX DISEASE [None]
  - GASTRITIS EROSIVE [None]
  - GASTROINTESTINAL HAEMORRHAGE [None]
  - RENAL FAILURE ACUTE [None]
  - ANAEMIA [None]
  - ILEUS [None]
  - NAUSEA [None]
  - STOMATITIS [None]
  - VOMITING [None]
  - OEDEMA [None]
  - WHITE BLOOD CELL COUNT DECREASED [None]
  - CONSTIPATION [None]
  - FEBRILE NEUTROPENIA [None]
  - PNEUMOCYSTIS JIROVECI PNEUMONIA [None]
